FAERS Safety Report 5515021-5 (Version None)
Quarter: 2007Q4

REPORT INFORMATION
  Report Type: 
  Country: None (occurrence: None)
  Receive Date: 20071113
  Receipt Date: 20061117
  Transmission Date: 20080405
  Serious: No
  Sender: FDA-Public Use
  Company Number: A0627935A

PATIENT
  Age: 82 Year
  Sex: Female

DRUGS (6)
  1. COREG [Suspect]
     Indication: HYPERTENSION
     Dosage: 12.5MG TWICE PER DAY
     Route: 048
     Dates: start: 20061102
  2. SINUCLEAR [Concomitant]
  3. CITRACAL [Concomitant]
  4. PROTONIX [Concomitant]
  5. FISH OIL [Concomitant]
  6. ADVIL LIQUI-GELS [Concomitant]

REACTIONS (3)
  - BLOOD PRESSURE FLUCTUATION [None]
  - DRUG INEFFECTIVE [None]
  - PHARMACEUTICAL PRODUCT COMPLAINT [None]
